FAERS Safety Report 5552629-5 (Version None)
Quarter: 2007Q4

REPORT INFORMATION
  Report Type: 
  Country: None (occurrence: None)
  Receive Date: 20071212
  Receipt Date: 20070621
  Transmission Date: 20080405
  Serious: No
  Sender: FDA-Public Use
  Company Number: US-AMGEN-KDL230581

PATIENT
  Sex: Female

DRUGS (2)
  1. ENBREL [Suspect]
     Indication: RHEUMATOID ARTHRITIS
     Route: 058
     Dates: start: 20070607
  2. ARAVA [Concomitant]

REACTIONS (5)
  - HEADACHE [None]
  - HYPOAESTHESIA [None]
  - MUSCULAR WEAKNESS [None]
  - NAUSEA [None]
  - VISUAL ACUITY REDUCED [None]
